FAERS Safety Report 5730517-9 (Version None)
Quarter: 2008Q2

REPORT INFORMATION
  Report Type: 
  Country: None (occurrence: None)
  Receive Date: 20080507
  Receipt Date: 20070131
  Transmission Date: 20081010
  Serious: Yes (Other)
  Sender: FDA-Public Use
  Company Number: JP-BRISTOL-MYERS SQUIBB COMPANY-14178628

PATIENT

DRUGS (1)
  1. ABILIFY [Suspect]
     Route: 048
     Dates: start: 20060701

REACTIONS (3)
  - ANOREXIA [None]
  - DELUSION [None]
  - INSOMNIA [None]
